FAERS Safety Report 8896878 (Version 1)
Quarter: 2012Q4

REPORT INFORMATION
  Report Type: Spontaneous
  Country: US (occurrence: None)
  Receive Date: 20121102
  Receipt Date: 20121102
  Transmission Date: 20130627
  Serious: Yes (Death)
  Sender: FDA-Public Use
  Company Number: 2012NUEUSA00139

PATIENT
  Sex: Female

DRUGS (1)
  1. NUEDEXTA [Suspect]

REACTIONS (2)
  - Weight decreased [None]
  - Unevaluable event [None]
